FAERS Safety Report 4755396-8 (Version None)
Quarter: 2005Q3

REPORT INFORMATION
  Report Type: 
  Country: None (occurrence: None)
  Receive Date: 20050826
  Receipt Date: 20050401
  Transmission Date: 20060218
  Serious: Yes (Other)
  Sender: FDA-Public Use
  Company Number: USA-2003-0005098

PATIENT
  Sex: Female

DRUGS (5)
  1. OXYCONTIN [Suspect]
     Indication: PAIN
     Dosage: 10 MG, TID, ORAL
     Route: 048
  2. ALPHAGAN [Concomitant]
  3. VALIUM [Concomitant]
  4. NEURONTIN [Concomitant]
  5. ALEVE [Concomitant]

REACTIONS (9)
  - BLOOD UREA INCREASED [None]
  - CONSTIPATION [None]
  - DRUG DEPENDENCE [None]
  - HYPERHIDROSIS [None]
  - NEUROPATHY PERIPHERAL [None]
  - PAIN [None]
  - SOMNOLENCE [None]
  - URINARY INCONTINENCE [None]
  - URINE OUTPUT INCREASED [None]
